FAERS Safety Report 16982386 (Version 4)
Quarter: 2020Q1

REPORT INFORMATION
  Report Type: Spontaneous
  Country: US (occurrence: US)
  Receive Date: 20191101
  Receipt Date: 20200317
  Transmission Date: 20200409
  Serious: No
  Sender: FDA-Public Use
  Company Number: US-BIOGEN-2019BI00781739

PATIENT
  Sex: Male

DRUGS (3)
  1. TECFIDERA [Suspect]
     Active Substance: DIMETHYL FUMARATE
     Route: 048
     Dates: start: 20190902
  2. TECFIDERA [Suspect]
     Active Substance: DIMETHYL FUMARATE
     Route: 048
     Dates: start: 20190823
  3. TECFIDERA [Suspect]
     Active Substance: DIMETHYL FUMARATE
     Indication: MULTIPLE SCLEROSIS
     Route: 048
     Dates: start: 20190826, end: 20190901

REACTIONS (12)
  - Swollen tongue [Unknown]
  - Feeling hot [Unknown]
  - Sleep disorder [Not Recovered/Not Resolved]
  - Rash macular [Unknown]
  - Tremor [Recovered/Resolved]
  - Dyspnoea [Unknown]
  - Mouth swelling [Unknown]
  - Swelling face [Unknown]
  - Flushing [Unknown]
  - Panic attack [Unknown]
  - Arthropathy [Unknown]
  - Product dose omission [Unknown]
